FAERS Safety Report 21104916 (Version 1)
Quarter: 2022Q3

REPORT INFORMATION
  Report Type: Spontaneous
  Country: US (occurrence: None)
  Receive Date: 20220719
  Receipt Date: 20220719
  Transmission Date: 20221026
  Serious: Yes (Life-Threatening, Hospitalization)
  Sender: FDA-Public Use
  Company Number: None

PATIENT
  Age: 60 Year
  Sex: Male
  Weight: 74.4 kg

DRUGS (1)
  1. KRYSTEXXA [Suspect]
     Active Substance: PEGLOTICASE
     Indication: Gout
     Dosage: FREQUENCY : EVERY OTHER WEEK;?
     Route: 042
     Dates: start: 20220607, end: 20220714

REACTIONS (5)
  - Seizure [None]
  - Loss of consciousness [None]
  - Confusional state [None]
  - Urinary incontinence [None]
  - Blood pressure decreased [None]

NARRATIVE: CASE EVENT DATE: 20220714
